FAERS Safety Report 16816743 (Version 1)
Quarter: 2019Q3

REPORT INFORMATION
  Report Type: Spontaneous
  Country: US (occurrence: US)
  Receive Date: 20190725
  Receipt Date: 20190725
  Transmission Date: 20191005
  Serious: Yes (Hospitalization)
  Sender: FDA-Public Use
  Company Number: None

PATIENT
  Age: 59 Year
  Sex: Female

DRUGS (1)
  1. RANITIDINE. [Suspect]
     Active Substance: RANITIDINE
     Indication: GASTROOESOPHAGEAL REFLUX DISEASE
     Dates: start: 20190417, end: 20190714

REACTIONS (4)
  - Musculoskeletal pain [None]
  - Diarrhoea [None]
  - Hypokalaemia [None]
  - Chest pain [None]

NARRATIVE: CASE EVENT DATE: 20190714
